FAERS Safety Report 15285360 (Version 1)
Quarter: 2018Q3

REPORT INFORMATION
  Report Type: Spontaneous
  Country: US (occurrence: US)
  Receive Date: 20180801
  Receipt Date: 20180801
  Transmission Date: 20181010
  Serious: Yes (Life-Threatening, Disabling, Other)
  Sender: FDA-Public Use
  Company Number: None

PATIENT
  Age: 59 Year
  Sex: Female
  Weight: 63.05 kg

DRUGS (17)
  1. VIT B?12 [Concomitant]
  2. MAGNESIUM [Concomitant]
     Active Substance: MAGNESIUM
  3. CALCIUM [Concomitant]
     Active Substance: CALCIUM
  4. ZINC. [Concomitant]
     Active Substance: ZINC
  5. LANTUS INSULINS [Concomitant]
  6. VITAMIN E [Concomitant]
     Active Substance: .ALPHA.-TOCOPHEROL
  7. APIDRA [Concomitant]
     Active Substance: INSULIN GLULISINE
  8. MULTIPLE VITAMINS AND MINERALS [Concomitant]
  9. NIACINAMIDE [Concomitant]
     Active Substance: NIACINAMIDE
  10. LANTUS [Suspect]
     Active Substance: INSULIN GLARGINE
     Indication: TYPE 1 DIABETES MELLITUS
     Dates: start: 20180628
  11. GINSENG [Concomitant]
     Active Substance: ASIAN GINSENG
  12. GARLIC. [Concomitant]
     Active Substance: GARLIC
  13. VIT B?6 [Concomitant]
  14. CURCUMIN [Concomitant]
     Active Substance: CURCUMIN
  15. LEVOTHYROXIN [Concomitant]
     Active Substance: LEVOTHYROXINE
  16. FISH OIL [Concomitant]
     Active Substance: FISH OIL
  17. CAYENNE PEPPER [Concomitant]
     Active Substance: CAPSICUM

REACTIONS (1)
  - Shock hypoglycaemic [None]

NARRATIVE: CASE EVENT DATE: 20180628
